FAERS Safety Report 21509388 (Version 1)
Quarter: 2022Q4

REPORT INFORMATION
  Report Type: Spontaneous
  Country: US (occurrence: US)
  Receive Date: 20221026
  Receipt Date: 20221026
  Transmission Date: 20230113
  Serious: Yes (Other)
  Sender: FDA-Public Use
  Company Number: US-SA-SAC20221017001151

PATIENT
  Age: 36 Year
  Sex: Female

DRUGS (1)
  1. DUPIXENT [Suspect]
     Active Substance: DUPILUMAB
     Dosage: 600 MG, 1X
     Route: 058

REACTIONS (9)
  - Abortion spontaneous [Unknown]
  - Skin fissures [Unknown]
  - Skin haemorrhage [Unknown]
  - Erythema [Unknown]
  - Eczema [Unknown]
  - Dry skin [Unknown]
  - Rash papular [Unknown]
  - Pruritus [Unknown]
  - Exposure during pregnancy [Unknown]

NARRATIVE: CASE EVENT DATE: 20220301
